FAERS Safety Report 9036371 (Version 1)
Quarter: 2013Q1

REPORT INFORMATION
  Report Type: Spontaneous
  Country: GB (occurrence: None)
  Receive Date: 20130114
  Receipt Date: 20130114
  Transmission Date: 20140127
  Serious: Yes (Life-Threatening, Hospitalization)
  Sender: FDA-Public Use
  Company Number: GER/UKI/13/0027379

PATIENT
  Age: 91 Year
  Sex: 0

DRUGS (20)
  1. CIPROFLOXACIN (CIPROFLOXACIN) [Suspect]
     Route: 048
     Dates: start: 20110325, end: 20110329
  2. LEVOFLOXACIN (LEVOFLOXACIN) [Suspect]
     Dates: start: 20110218, end: 20110225
  3. LEVOFLOXACIN (LEVOFLOXACIN) [Suspect]
     Dates: start: 20110218, end: 20110225
  4. BENZYLPENICILLIN (BENZYLPENICILLIN) [Suspect]
     Dates: start: 20110218
  5. DOXYCYCLINE (DOXYCYCLINE) [Suspect]
     Route: 048
     Dates: start: 20100804
  6. ERTAPENEM (ERTAPENEM) [Suspect]
     Route: 042
     Dates: start: 20110330, end: 20110331
  7. FLUCLOXACILLIN (FLUCLOXACILLIN) [Suspect]
     Route: 048
     Dates: start: 20090710, end: 20090715
  8. CIPROFLOXACIN (CIPROFLOXACIN) [Suspect]
     Route: 041
     Dates: start: 20110324
  9. ADCAL-D3 (LEKOVIT CA) [Concomitant]
  10. ASPIRIN (ACETYLSALICYLIC ACID) [Concomitant]
  11. ATORVASTATIN (ATORVASTATIN) [Concomitant]
  12. BUMETANIDE (BUMETANIDE) [Concomitant]
  13. IPRATROPIUM (IPRATROPIUM) [Concomitant]
  14. PARACETAMOL (PARACETAMOL) [Concomitant]
  15. QUETIAPINE (QUETIAPINE) (QUETIAPINE) [Concomitant]
  16. SALBUTAMOL (SALBUTAMOL) [Concomitant]
  17. SENNA (SENNA ALEXANDRINA) [Concomitant]
  18. THIAMINE (THIAMINE) [Concomitant]
  19. UNIPHYLLIN CONTINUS (THEOPHYLLINE) [Concomitant]
  20. VITAMIN B COMPOUND(B-KOMPLEX) [Concomitant]

REACTIONS (7)
  - Clostridium difficile infection [None]
  - Confusional state [None]
  - Diarrhoea [None]
  - Dysuria [None]
  - Hypotension [None]
  - Pneumonia [None]
  - Urosepsis [None]
